FAERS Safety Report 10930013 (Version 2)
Quarter: 2015Q2

REPORT INFORMATION
  Report Type: Report from Study
  Country: AU (occurrence: AU)
  Receive Date: 20150319
  Receipt Date: 20150519
  Transmission Date: 20150821
  Serious: Yes (Other)
  Sender: FDA-Public Use
  Company Number: AU-SA-2015SA031151

PATIENT
  Age: 68 Year
  Sex: Male

DRUGS (5)
  1. APIDRA [Suspect]
     Active Substance: INSULIN GLULISINE
     Dosage: DOSE:20UNITS BREAKFAST, 18 UNITS LUNCH AND 16 UNITS DINNER
     Route: 065
     Dates: start: 2013
  2. LANTUS [Suspect]
     Active Substance: INSULIN GLARGINE
     Dosage: DOSE: 20 UNITS AM AND 22 UNITS PM
     Route: 065
     Dates: start: 2013
  3. APIDRA [Suspect]
     Active Substance: INSULIN GLULISINE
     Dosage: DOSE:20UNITS BREAKFAST, 18 UNITS LUNCH AND 16 UNITS DINNER
     Route: 065
     Dates: start: 20150218
  4. LANTUS [Suspect]
     Active Substance: INSULIN GLARGINE
     Dosage: DOSE:22 UNIT(S)
     Route: 065
     Dates: start: 20150218
  5. NOVOMIX [Concomitant]
     Active Substance: INSULIN ASPART

REACTIONS (7)
  - Drug dose omission [Unknown]
  - Prostatic operation [Unknown]
  - Abdominal wall disorder [Not Recovered/Not Resolved]
  - Blood glucose decreased [Recovered/Resolved]
  - Drug administration error [Unknown]
  - Blood glucose increased [Not Recovered/Not Resolved]
  - Blood glucose abnormal [Not Recovered/Not Resolved]

NARRATIVE: CASE EVENT DATE: 2014
